FAERS Safety Report 4873453-2 (Version None)
Quarter: 2005Q4

REPORT INFORMATION
  Report Type: 
  Country: None (occurrence: None)
  Receive Date: 20051201
  Receipt Date: 20050819
  Transmission Date: 20060501
  Serious: No
  Sender: FDA-Public Use
  Company Number: 2005PV001363

PATIENT
  Age: 75 Year
  Sex: Male
  Weight: 101.6057 kg

DRUGS (16)
  1. BYETTA [Suspect]
     Indication: DIABETES MELLITUS NON-INSULIN-DEPENDENT
     Dosage: SEE IMAGE
     Route: 058
     Dates: start: 20050628, end: 20050727
  2. BYETTA [Suspect]
     Indication: DIABETES MELLITUS NON-INSULIN-DEPENDENT
     Dosage: SEE IMAGE
     Route: 058
     Dates: start: 20050728
  3. HUMALOG [Concomitant]
  4. LANTUS [Concomitant]
  5. LANOXIN [Concomitant]
  6. POTASSIUM [Concomitant]
  7. DEMADEX [Concomitant]
  8. MAGNESIUM [Concomitant]
  9. COREG [Concomitant]
  10. SPIRONOLACTONE [Concomitant]
  11. ZESTRIL [Concomitant]
  12. ASCORBIC ACID [Concomitant]
  13. ECOTRIN [Concomitant]
  14. NEXIUM [Concomitant]
  15. COUMADIN [Concomitant]
  16. ZETIA [Concomitant]

REACTIONS (5)
  - BLOOD GLUCOSE INCREASED [None]
  - EARLY SATIETY [None]
  - NAUSEA [None]
  - SINUSITIS [None]
  - WEIGHT DECREASED [None]
